FAERS Safety Report 16985900 (Version 1)
Quarter: 2019Q4

REPORT INFORMATION
  Report Type: Spontaneous
  Country: US (occurrence: US)
  Receive Date: 20191031
  Receipt Date: 20191031
  Transmission Date: 20200122
  Serious: No
  Sender: FDA-Public Use
  Company Number: None

PATIENT
  Age: 44 Year
  Sex: Male
  Weight: 82.1 kg

DRUGS (1)
  1. RENFLEXIS [Suspect]
     Active Substance: INFLIXIMAB-ABDA
     Indication: PSORIATIC ARTHROPATHY
     Dosage: 412 MG INTRAVENOUS DRIP EVERY 8 WEEKS
     Route: 041
     Dates: start: 20190225, end: 20190927

REACTIONS (5)
  - Flushing [None]
  - Wheezing [None]
  - Dyspnoea [None]
  - Chills [None]
  - Nausea [None]

NARRATIVE: CASE EVENT DATE: 20190927
